FAERS Safety Report 8236062-3 (Version None)
Quarter: 2012Q1

REPORT INFORMATION
  Report Type: 
  Country: None (occurrence: None)
  Receive Date: 20120327
  Receipt Date: 20120312
  Transmission Date: 20120608
  Serious: Yes (Disabling)
  Sender: FDA-Public Use
  Company Number: PT-AMGEN-PRTSP2012016820

PATIENT
  Age: 57 Year
  Sex: Male
  Weight: 80 kg

DRUGS (4)
  1. ATORVASTATIN [Concomitant]
     Dosage: 20 MG, UNK
     Route: 048
  2. ENBREL [Suspect]
     Indication: PSORIATIC ARTHROPATHY
     Dosage: 50 MG, WEEKLY
     Route: 058
     Dates: start: 20080101, end: 20120101
  3. GLICLAZIDE [Concomitant]
     Dosage: 30 MG, UNK
     Route: 048
  4. AMLODIPINE BESYLATE AND OLMESARTAN MEDOXOMIL [Concomitant]
     Dosage: 5MG+20MG, UNK
     Route: 048

REACTIONS (2)
  - ABDOMINAL DISTENSION [None]
  - VISION BLURRED [None]
